FAERS Safety Report 6180284-2 (Version None)
Quarter: 2009Q2

REPORT INFORMATION
  Report Type: 
  Country: None (occurrence: None)
  Receive Date: 20090506
  Receipt Date: 20080509
  Transmission Date: 20091009
  Serious: No
  Sender: FDA-Public Use
  Company Number: US-ASTRAZENECA-2008UW04625

PATIENT
  Age: 16790 Day
  Sex: Female
  Weight: 96.6 kg

DRUGS (8)
  1. SEROQUEL [Suspect]
     Indication: BIPOLAR DISORDER
     Dosage: 100 MG
     Route: 048
     Dates: start: 19991103, end: 20010925
  2. PAXIL [Concomitant]
  3. NEURONTIN [Concomitant]
  4. SULFAMETHOXAZOLE AND TRIMETHOPRIM [Concomitant]
  5. MOBAN [Concomitant]
  6. LEVAQUIN [Concomitant]
  7. ZITHROMAX [Concomitant]
  8. LOPROX [Concomitant]

REACTIONS (16)
  - ANAEMIA [None]
  - BLOOD CHOLESTEROL INCREASED [None]
  - DEPRESSION [None]
  - DIABETES MELLITUS [None]
  - FATIGUE [None]
  - FUNGAL SKIN INFECTION [None]
  - HYPERTENSION [None]
  - HYPERTONIC BLADDER [None]
  - INSOMNIA [None]
  - LARYNGITIS [None]
  - NODULE [None]
  - PAIN IN EXTREMITY [None]
  - SCHIZOPHRENIA [None]
  - STRESS URINARY INCONTINENCE [None]
  - URINARY TRACT INFECTION [None]
  - VERTIGO [None]
